FAERS Safety Report 25383973 (Version 1)
Quarter: 2025Q2

REPORT INFORMATION
  Report Type: Spontaneous
  Country: US (occurrence: US)
  Receive Date: 20250602
  Receipt Date: 20250602
  Transmission Date: 20250716
  Serious: Yes (Other)
  Sender: COOPERSURGICAL
  Company Number: US-COOPERSURGICAL, INC.-2025CPS004482

PATIENT
  Sex: Female
  Weight: 65.76 kg

DRUGS (6)
  1. PARAGARD T 380A [Suspect]
     Active Substance: COPPER
     Indication: Contraception
     Route: 015
     Dates: start: 20140127
  2. AMITRIPTYLINE [Concomitant]
     Active Substance: AMITRIPTYLINE
     Dates: start: 201901
  3. CAMBIA [Concomitant]
     Active Substance: DICLOFENAC POTASSIUM
     Dates: start: 201901
  4. VYVANSE [Concomitant]
     Active Substance: LISDEXAMFETAMINE DIMESYLATE
     Dates: start: 201901
  5. BOTOX [Concomitant]
     Active Substance: ONABOTULINUMTOXINA
     Dates: start: 201901
  6. GABAPENTIN [Concomitant]
     Active Substance: GABAPENTIN
     Dates: start: 202001

REACTIONS (17)
  - Reproductive complication associated with device [Not Recovered/Not Resolved]
  - Uterine disorder [Unknown]
  - Device breakage [Not Recovered/Not Resolved]
  - Foreign body in reproductive tract [Not Recovered/Not Resolved]
  - Complication of device removal [Not Recovered/Not Resolved]
  - Embedded device [Not Recovered/Not Resolved]
  - Device expulsion [Recovered/Resolved]
  - Procedural pain [Recovered/Resolved]
  - Sexual dysfunction [Not Recovered/Not Resolved]
  - Psychological trauma [Not Recovered/Not Resolved]
  - Endometriosis [Not Recovered/Not Resolved]
  - Depression [Not Recovered/Not Resolved]
  - Menstrual discomfort [Not Recovered/Not Resolved]
  - Dyspareunia [Not Recovered/Not Resolved]
  - Unevaluable event [Not Recovered/Not Resolved]
  - Discomfort [Not Recovered/Not Resolved]
  - Pain [Not Recovered/Not Resolved]

NARRATIVE: CASE EVENT DATE: 20200101
